FAERS Safety Report 8561928-4 (Version None)
Quarter: 2012Q3

REPORT INFORMATION
  Report Type: 
  Country: None (occurrence: None)
  Receive Date: 20120802
  Receipt Date: 20120725
  Transmission Date: 20120928
  Serious: Yes (Hospitalization, Other)
  Sender: FDA-Public Use
  Company Number: US-ABBOTT-12P-163-0953097-00

PATIENT
  Age: 37 Year
  Sex: Female

DRUGS (9)
  1. BENADRYL [Concomitant]
     Indication: SEASONAL ALLERGY
  2. SOLU-MEDROL [Concomitant]
     Indication: CROHN'S DISEASE
     Route: 042
     Dates: start: 20120702
  3. ANUSOL [Concomitant]
     Indication: HAEMORRHOIDS
     Dosage: AS NEEDED TWICE DAILY
  4. CLARITIN [Concomitant]
     Indication: SEASONAL ALLERGY
  5. MELOXICAM [Concomitant]
     Indication: PRODUCT USED FOR UNKNOWN INDICATION
     Dosage: AT NIGHT
  6. RECLAST [Concomitant]
     Indication: OSTEOPOROSIS
  7. METHACARBAMOL [Concomitant]
     Indication: PRODUCT USED FOR UNKNOWN INDICATION
  8. ALLEGRA [Concomitant]
     Indication: SEASONAL ALLERGY
  9. HUMIRA [Suspect]
     Indication: CROHN'S DISEASE
     Dosage: UNKNOWN STARTING DOSE
     Dates: start: 20120703

REACTIONS (9)
  - HAEMORRHOIDS [None]
  - INJECTION SITE ERYTHEMA [None]
  - INJECTION SITE HAEMATOMA [None]
  - MALAISE [None]
  - INJECTION SITE PAIN [None]
  - INJECTION SITE LACERATION [None]
  - DRUG INEFFECTIVE [None]
  - CROHN'S DISEASE [None]
  - INJECTION SITE HAEMORRHAGE [None]
